FAERS Safety Report 13898341 (Version 1)
Quarter: 2017Q3

REPORT INFORMATION
  Report Type: Spontaneous
  Country: HR (occurrence: HR)
  Receive Date: 20170823
  Receipt Date: 20170823
  Transmission Date: 20171127
  Serious: Yes (Other)
  Sender: FDA-Public Use
  Company Number: PHHY2017HR069839

PATIENT
  Age: 80 Year
  Sex: Female

DRUGS (8)
  1. ROSUVASTATIN. [Suspect]
     Active Substance: ROSUVASTATIN
     Indication: CAROTID ARTERY STENOSIS
     Dosage: 40 MG, QD
     Route: 065
  2. CLONAZEPAM. [Concomitant]
     Active Substance: CLONAZEPAM
     Indication: PRODUCT USED FOR UNKNOWN INDICATION
     Dosage: 1 MG, QD
     Route: 065
  3. MAPROTILINE [Interacting]
     Active Substance: MAPROTILINE
     Indication: ANXIETY
     Dosage: 75 MG, QD
     Route: 065
  4. CLOPIDOGREL [Concomitant]
     Active Substance: CLOPIDOGREL BISULFATE
     Indication: CAROTID ARTERY STENOSIS
     Dosage: 75 MG, QD
     Route: 065
  5. MAPROTILINE [Interacting]
     Active Substance: MAPROTILINE
     Indication: INSOMNIA
  6. PANTOPRAZOLE [Concomitant]
     Active Substance: PANTOPRAZOLE
     Indication: PRODUCT USED FOR UNKNOWN INDICATION
     Dosage: 40 MG, UNK
     Route: 065
  7. FORMOTEROL [Concomitant]
     Active Substance: FORMOTEROL
     Indication: PRODUCT USED FOR UNKNOWN INDICATION
     Dosage: 1 PUFF, BID
     Route: 055
  8. BUDESONIDE. [Concomitant]
     Active Substance: BUDESONIDE
     Indication: PRODUCT USED FOR UNKNOWN INDICATION
     Dosage: 1 PUFF, BID
     Route: 055

REACTIONS (9)
  - Constipation [Recovered/Resolved]
  - Abdominal distension [Recovered/Resolved]
  - Intestinal dilatation [Recovered/Resolved]
  - Gastrointestinal sounds abnormal [Recovered/Resolved]
  - Toxicity to various agents [Unknown]
  - Rhabdomyolysis [Recovered/Resolved]
  - Drug interaction [Unknown]
  - Product use in unapproved indication [Unknown]
  - Intestinal pseudo-obstruction [Recovered/Resolved]
